FAERS Safety Report 15984070 (Version 3)
Quarter: 2019Q1

REPORT INFORMATION
  Report Type: Spontaneous
  Country: FR (occurrence: FR)
  Receive Date: 20190220
  Receipt Date: 20190312
  Transmission Date: 20190418
  Serious: Yes (Death, Disabling)
  Sender: FDA-Public Use
  Company Number: FR-ASTELLAS-2019US006764

PATIENT
  Age: 86 Year
  Sex: Male
  Weight: 58 kg

DRUGS (3)
  1. XTANDI [Suspect]
     Active Substance: ENZALUTAMIDE
     Route: 048
  2. XTANDI [Suspect]
     Active Substance: ENZALUTAMIDE
     Dosage: 1 OR 2 DF, ONCE DAILY
     Route: 048
     Dates: end: 20190205
  3. XTANDI [Suspect]
     Active Substance: ENZALUTAMIDE
     Indication: PRODUCT USED FOR UNKNOWN INDICATION
     Dosage: UNK UNK, UNKNOWN FREQ.
     Route: 048
     Dates: start: 20180727

REACTIONS (4)
  - Haematuria [Unknown]
  - General physical health deterioration [Fatal]
  - Bone pain [Fatal]
  - Asthenia [Unknown]

NARRATIVE: CASE EVENT DATE: 201808
